FAERS Safety Report 9999064 (Version 1)
Quarter: 2014Q1

REPORT INFORMATION
  Report Type: Spontaneous
  Country: US (occurrence: None)
  Receive Date: 20140311
  Receipt Date: 20140311
  Transmission Date: 20141002
  Serious: No
  Sender: FDA-Public Use
  Company Number: None

PATIENT
  Age: 29 Year
  Sex: Female
  Weight: 63.5 kg

DRUGS (1)
  1. MINASTRIN 24 FE 1 MG/20 MG WARNER CHILCOTT [Suspect]
     Indication: CONTRACEPTION
     Dosage: 1 PILL ONCE DAILY CHEWED BY MOUTH
     Route: 048
     Dates: start: 20140122, end: 20140304

REACTIONS (6)
  - Abdominal pain [None]
  - Gastrointestinal disorder [None]
  - Abdominal distension [None]
  - Diarrhoea [None]
  - Flatulence [None]
  - Pain [None]
